FAERS Safety Report 5800401-0 (Version None)
Quarter: 2008Q3

REPORT INFORMATION
  Report Type: 
  Country: None (occurrence: None)
  Receive Date: 20080703
  Receipt Date: 20080630
  Transmission Date: 20090109
  Serious: Yes (Other)
  Sender: FDA-Public Use
  Company Number: US-MERCK-0806USA08397

PATIENT
  Age: 73 Year
  Sex: Male

DRUGS (1)
  1. INVANZ [Suspect]
     Indication: DIABETIC FOOT INFECTION
     Route: 042
     Dates: end: 20080606

REACTIONS (4)
  - CONFUSIONAL STATE [None]
  - DIABETIC FOOT INFECTION [None]
  - HALLUCINATION [None]
  - OVERDOSE [None]
